FAERS Safety Report 24583383 (Version 2)
Quarter: 2025Q3

REPORT INFORMATION
  Report Type: Report from Study
  Country: KR (occurrence: KR)
  Receive Date: 20241106
  Receipt Date: 20250917
  Transmission Date: 20251021
  Serious: Yes (Other)
  Sender: TAKEDA
  Company Number: KR-TAKEDA-2024TUS110899

PATIENT
  Age: 68 Year
  Sex: Male
  Weight: 70 kg

DRUGS (9)
  1. VEDOLIZUMAB [Suspect]
     Active Substance: VEDOLIZUMAB
     Indication: Crohn^s disease
  2. AZATHIOPRINE [Concomitant]
     Active Substance: AZATHIOPRINE
     Dosage: 100 MILLIGRAM, QD
     Dates: start: 20230308
  3. Solondo [Concomitant]
     Dosage: 25 MILLIGRAM, QD
     Dates: start: 20230809, end: 20230822
  4. Solondo [Concomitant]
     Dosage: 20 MILLIGRAM, QD
     Dates: start: 20230823, end: 20230829
  5. Solondo [Concomitant]
     Dosage: 15 MILLIGRAM, QD
     Dates: start: 20230830, end: 20230905
  6. Solondo [Concomitant]
     Dosage: 10 MILLIGRAM, QD
     Dates: start: 20230906, end: 20230912
  7. Solondo [Concomitant]
     Dosage: 5 MILLIGRAM, QD
     Dates: start: 20230913, end: 20230919
  8. REMICADE [Concomitant]
     Active Substance: INFLIXIMAB
     Dates: start: 20131227, end: 20140313
  9. HUMIRA [Concomitant]
     Active Substance: ADALIMUMAB
     Dosage: UNK, Q2WEEKS
     Dates: start: 20140313, end: 201404

REACTIONS (1)
  - Crohn^s disease [Recovered/Resolved]

NARRATIVE: CASE EVENT DATE: 20240319
